FAERS Safety Report 4805123-0 (Version None)
Quarter: 2005Q4

REPORT INFORMATION
  Report Type: 
  Country: None (occurrence: None)
  Receive Date: 20051017
  Receipt Date: 20050930
  Transmission Date: 20060501
  Serious: Yes (Hospitalization)
  Sender: FDA-Public Use
  Company Number: 2004-00432

PATIENT
  Age: 66 Year
  Sex: Male

DRUGS (8)
  1. VELCADE [Suspect]
     Indication: MANTLE CELL LYMPHOMA
     Dosage: 2.90 MG, INTRAVENOUS
     Route: 042
     Dates: start: 20030827, end: 20030907
  2. ZESTRIL [Concomitant]
  3. VERAPAMIL [Concomitant]
  4. KLONOPIN [Concomitant]
  5. TOPROL-XL [Concomitant]
  6. CLONODINE (CLONIDINE) [Concomitant]
  7. CLARITIN [Concomitant]
  8. SEROQUEL [Concomitant]

REACTIONS (23)
  - ANAEMIA [None]
  - ANOREXIA [None]
  - ASTHENIA [None]
  - BLOOD CHLORIDE DECREASED [None]
  - BLOOD CREATININE INCREASED [None]
  - BLOOD LACTATE DEHYDROGENASE INCREASED [None]
  - BLOOD POTASSIUM DECREASED [None]
  - BLOOD UREA INCREASED [None]
  - CONFUSIONAL STATE [None]
  - DEHYDRATION [None]
  - DELIRIUM [None]
  - DIABETES MELLITUS INADEQUATE CONTROL [None]
  - DISORIENTATION [None]
  - DRY MOUTH [None]
  - HAEMATOCRIT DECREASED [None]
  - HAEMOGLOBIN DECREASED [None]
  - HAEMOPTYSIS [None]
  - LETHARGY [None]
  - MANTLE CELL LYMPHOMA [None]
  - NAUSEA [None]
  - NEOPLASM RECURRENCE [None]
  - RED BLOOD CELL COUNT DECREASED [None]
  - THROMBOCYTOPENIA [None]
